FAERS Safety Report 25622465 (Version 1)
Quarter: 2025Q3

REPORT INFORMATION
  Report Type: Spontaneous
  Country: EU (occurrence: EU)
  Receive Date: 20250730
  Receipt Date: 20250730
  Transmission Date: 20251020
  Serious: Yes (Hospitalization, Other)
  Sender: ELI LILLY AND COMPANY
  Company Number: None

PATIENT
  Age: 42 Year
  Sex: Male
  Weight: 85 kg

DRUGS (19)
  1. PEMETREXED [Suspect]
     Active Substance: PEMETREXED
     Indication: Lung adenocarcinoma stage IV
     Dosage: 2000 MG, DAILY
     Route: 042
     Dates: start: 20241205, end: 20241226
  2. PEMETREXED [Suspect]
     Active Substance: PEMETREXED
     Dosage: 510 MG, DAILY
     Route: 042
     Dates: start: 20250116, end: 20250116
  3. PEMETREXED [Suspect]
     Active Substance: PEMETREXED
     Dosage: 510 MG, DAILY
     Route: 042
     Dates: start: 20250210, end: 20250210
  4. PEMETREXED [Suspect]
     Active Substance: PEMETREXED
     Dosage: 510 MG, DAILY
     Route: 042
     Dates: start: 20250321, end: 20250321
  5. PEMETREXED [Suspect]
     Active Substance: PEMETREXED
     Dosage: 2000 MG, DAILY
     Route: 042
     Dates: start: 20250424, end: 20250515
  6. PEMETREXED [Suspect]
     Active Substance: PEMETREXED
     Dosage: 2000 MG, DAILY
     Route: 042
     Dates: start: 20250612
  7. AMIVANTAMAB [Suspect]
     Active Substance: AMIVANTAMAB
     Indication: Lung adenocarcinoma stage IV
     Dosage: 7000 MG, DAILY
     Route: 042
     Dates: start: 20241205, end: 20241226
  8. AMIVANTAMAB [Suspect]
     Active Substance: AMIVANTAMAB
     Route: 042
     Dates: start: 20250116
  9. AMIVANTAMAB [Suspect]
     Active Substance: AMIVANTAMAB
     Route: 042
     Dates: start: 20250210
  10. AMIVANTAMAB [Suspect]
     Active Substance: AMIVANTAMAB
     Route: 042
     Dates: start: 20250321
  11. CARBOPLATIN [Suspect]
     Active Substance: CARBOPLATIN
     Indication: Lung adenocarcinoma stage IV
     Dosage: 1800 MG, DAILY
     Route: 042
     Dates: start: 20241205, end: 20241226
  12. CARBOPLATIN [Suspect]
     Active Substance: CARBOPLATIN
     Dosage: 934 MG, DAILY
     Route: 042
     Dates: start: 20250116, end: 20250116
  13. CARBOPLATIN [Suspect]
     Active Substance: CARBOPLATIN
     Dosage: 934 MG, DAILY
     Route: 042
     Dates: start: 20250210, end: 20250210
  14. CARBOPLATIN [Suspect]
     Active Substance: CARBOPLATIN
     Dosage: 869 MG, DAILY
     Route: 042
     Dates: start: 20250321, end: 20250321
  15. CARBOPLATIN [Suspect]
     Active Substance: CARBOPLATIN
     Dosage: 1577 MG, DAILY
     Route: 042
     Dates: start: 20250424
  16. EMEND [Concomitant]
     Active Substance: APREPITANT
     Indication: Product used for unknown indication
  17. ONDANSETRON [Concomitant]
     Active Substance: ONDANSETRON
     Indication: Product used for unknown indication
  18. PREDNISONE [Concomitant]
     Active Substance: PREDNISONE
     Indication: Product used for unknown indication
  19. LANSOPRAZOLE [Concomitant]
     Active Substance: LANSOPRAZOLE
     Indication: Product used for unknown indication

REACTIONS (4)
  - Blood magnesium decreased [Unknown]
  - Hypokalaemia [Recovered/Resolved]
  - Renal impairment [Unknown]
  - Influenza [Unknown]

NARRATIVE: CASE EVENT DATE: 20250219
